FAERS Safety Report 21293864 (Version 1)
Quarter: 2022Q3

REPORT INFORMATION
  Report Type: Spontaneous
  Country: US (occurrence: US)
  Receive Date: 20220905
  Receipt Date: 20220905
  Transmission Date: 20221026
  Serious: No
  Sender: FDA-Public Use
  Company Number: US-PADAGIS-2022PAD00299

PATIENT

DRUGS (8)
  1. NYSTOP [Suspect]
     Active Substance: NYSTATIN
     Indication: Fungal infection
     Dosage: UNK, QID
     Route: 065
  2. ALBUTEROL SULFATE [Concomitant]
     Active Substance: ALBUTEROL SULFATE
     Indication: Asthma
     Dosage: 2 PUFF EVERY 4 HOUR
  3. LIPITOR [Concomitant]
     Active Substance: ATORVASTATIN CALCIUM
     Indication: Hyperlipidaemia
     Dosage: QD
     Route: 048
  4. FLOVENT HFA [Concomitant]
     Active Substance: FLUTICASONE PROPIONATE
     Indication: Asthma
     Dosage: 2 PUFF TWICE A DAY
  5. NEURONTIN [Concomitant]
     Active Substance: GABAPENTIN
     Indication: Neuralgia
     Dosage: 300 MG 1 CAPSULE AT BED TIME
     Route: 048
  6. XALATAN [Concomitant]
     Active Substance: LATANOPROST
     Indication: Open angle glaucoma
     Dosage: 1 DROP AT BED TIME
     Route: 047
  7. HYZAAR [Concomitant]
     Active Substance: HYDROCHLOROTHIAZIDE\LOSARTAN POTASSIUM
     Indication: Hypertension
     Dosage: ONE TABLET,  QD
     Route: 048
  8. TOPIRAMATE [Concomitant]
     Active Substance: TOPIRAMATE
     Indication: Migraine
     Dosage: ONE TABLET QD
     Route: 048

REACTIONS (1)
  - Iron deficiency anaemia [Unknown]
